FAERS Safety Report 6805432-X (Version None)
Quarter: 2010Q2

REPORT INFORMATION
  Report Type: 
  Country: None (occurrence: None)
  Receive Date: 20100628
  Receipt Date: 20071119
  Transmission Date: 20101027
  Serious: No
  Sender: FDA-Public Use
  Company Number: US-PFIZER INC-2007098150

PATIENT
  Age: 40 Year
  Sex: Female

DRUGS (2)
  1. GEODON [Suspect]
     Indication: MANIA
     Route: 048
     Dates: start: 20070725
  2. BUPROPION HCL [Interacting]
     Indication: DEPRESSION
     Dates: end: 20071025

REACTIONS (9)
  - AGITATION [None]
  - DRUG INTERACTION [None]
  - FEELING ABNORMAL [None]
  - GAIT DISTURBANCE [None]
  - INCORRECT DOSE ADMINISTERED [None]
  - INSOMNIA [None]
  - MALAISE [None]
  - SEDATION [None]
  - SOMNOLENCE [None]
